FAERS Safety Report 19648494 (Version 1)
Quarter: 2021Q3

REPORT INFORMATION
  Report Type: Spontaneous
  Country: US (occurrence: US)
  Receive Date: 20210803
  Receipt Date: 20210803
  Transmission Date: 20211014
  Serious: No
  Sender: FDA-Public Use
  Company Number: US-SA-2021SA253181

PATIENT
  Sex: Female

DRUGS (1)
  1. DUPIXENT [Suspect]
     Active Substance: DUPILUMAB
     Indication: PRURIGO
     Dosage: UNK
     Route: 058
     Dates: start: 20210518

REACTIONS (2)
  - Blood cholesterol increased [Unknown]
  - Product use in unapproved indication [Unknown]
